FAERS Safety Report 9421835 (Version 3)
Quarter: 2013Q3

REPORT INFORMATION
  Report Type: Spontaneous
  Country: GB (occurrence: GB)
  Receive Date: 20130726
  Receipt Date: 20130828
  Transmission Date: 20140515
  Serious: Yes (Death)
  Sender: FDA-Public Use
  Company Number: PHFR2013GB004269

PATIENT
  Sex: Male

DRUGS (6)
  1. CLOZARIL [Suspect]
     Indication: SCHIZOPHRENIA
     Dosage: UKN
     Route: 048
     Dates: start: 20091102
  2. ESOMEPRAZOLE [Concomitant]
     Dosage: 40 MG
     Route: 048
     Dates: start: 201306
  3. SINEMET PLUS [Concomitant]
     Dosage: 125 MG
     Route: 048
     Dates: start: 201306
  4. SINEMET [Concomitant]
     Dosage: 600 MG (1/2 CR)
     Dates: start: 201306
  5. ACIFOL//FOLIC ACID [Concomitant]
     Dosage: 5 MG
  6. ADCAL D3 [Concomitant]
     Dosage: UNK UKN, TID
     Route: 048
     Dates: start: 201306

REACTIONS (1)
  - Parkinson^s disease [Fatal]
